FAERS Safety Report 7424089-0 (Version None)
Quarter: 2011Q2

REPORT INFORMATION
  Report Type: 
  Country: None (occurrence: None)
  Receive Date: 20110419
  Receipt Date: 20110411
  Transmission Date: 20111010
  Serious: Yes (Other)
  Sender: FDA-Public Use
  Company Number: GXKR2010US08010

PATIENT
  Age: 48 Year
  Sex: Female

DRUGS (6)
  1. COLECALCIFEROL [Concomitant]
     Dosage: 1200 IU, UNK
     Route: 048
  2. HYDROCHLOROTHIAZIDE [Concomitant]
     Dosage: UNK UKN, UNK
  3. NIFEDIPINE [Concomitant]
     Dosage: UNK UKN, UNK
  4. LANSOPRAZOLE [Suspect]
     Indication: HELICOBACTER INFECTION
     Dosage: 30 MG, BID
     Route: 065
  5. CALCIUM CARBONATE [Concomitant]
     Dosage: 1500 MG, UNK
  6. LEVOTHYROXINE SODIUM [Concomitant]
     Dosage: 175 UG, UNK

REACTIONS (11)
  - HYPOCALCAEMIA [None]
  - ELECTROCARDIOGRAM QT PROLONGED [None]
  - HEART RATE INCREASED [None]
  - EXOPHTHALMOS [None]
  - BLOOD PRESSURE DECREASED [None]
  - CONVULSION [None]
  - TETANY [None]
  - LID LAG [None]
  - PARAESTHESIA [None]
  - MUSCLE SPASMS [None]
  - HYPOPARATHYROIDISM [None]
